FAERS Safety Report 8072124-1 (Version None)
Quarter: 2012Q1

REPORT INFORMATION
  Report Type: 
  Country: None (occurrence: None)
  Receive Date: 20120124
  Receipt Date: 20120124
  Transmission Date: 20120608
  Serious: Yes (Life-Threatening, Hospitalization)
  Sender: FDA-Public Use
  Company Number: None

PATIENT
  Age: 42 Year
  Sex: Male
  Weight: 86.4 kg

DRUGS (2)
  1. IOPROMIDE [Suspect]
     Indication: SCAN WITH CONTRAST
     Dosage: 80 ML ONCE IV
     Route: 042
     Dates: start: 20110823, end: 20110823
  2. LISINOPRIL AND HYDROCHLOROTHIAZIDE [Suspect]
     Indication: HYPERTENSION
     Dosage: 1 TAB EVERY DAY PO
     Route: 048
     Dates: start: 20110822, end: 20110823

REACTIONS (9)
  - OEDEMA [None]
  - SENSATION OF FOREIGN BODY [None]
  - HYPERTENSION [None]
  - DYSPHAGIA [None]
  - PYREXIA [None]
  - ANGIOEDEMA [None]
  - SWELLING FACE [None]
  - DYSPNOEA [None]
  - ANKLE FRACTURE [None]
